FAERS Safety Report 24185065 (Version 1)
Quarter: 2024Q3

REPORT INFORMATION
  Report Type: Spontaneous
  Country: US (occurrence: US)
  Receive Date: 20240807
  Receipt Date: 20240807
  Transmission Date: 20241016
  Serious: Yes (Life-Threatening, Other)
  Sender: PFIZER
  Company Number: US-PFIZER INC-202400230197

PATIENT
  Age: 9 Month
  Sex: Female

DRUGS (2)
  1. CYTARABINE [Suspect]
     Active Substance: CYTARABINE
     Indication: Acute leukaemia
     Dosage: 100 MG/KG, CYCLIC (EVERY 12 HRS X 6 DOSES)
  2. DAUNORUBICIN [Suspect]
     Active Substance: DAUNORUBICIN
     Indication: Acute leukaemia
     Dosage: 1 MG/KG, SINGLE

REACTIONS (4)
  - Candida pneumonia [Unknown]
  - Sepsis [Unknown]
  - Klebsiella infection [Unknown]
  - Staphylococcal infection [Unknown]
